FAERS Safety Report 7954217-X (Version None)
Quarter: 2011Q4

REPORT INFORMATION
  Report Type: 
  Country: None (occurrence: None)
  Receive Date: 20111202
  Receipt Date: 20111201
  Transmission Date: 20120403
  Serious: Yes (Other)
  Sender: FDA-Public Use
  Company Number: US-ROCHE-793666

PATIENT
  Sex: Male
  Weight: 88.5 kg

DRUGS (3)
  1. MINOCYCLINE HCL [Concomitant]
     Indication: ACNE
  2. ACCUTANE [Suspect]
     Indication: ACNE
     Route: 048
     Dates: start: 20000418, end: 20000826
  3. CIPROFLOXACIN [Concomitant]
     Indication: ACNE

REACTIONS (4)
  - INJURY [None]
  - COLITIS ULCERATIVE [None]
  - INFLAMMATORY BOWEL DISEASE [None]
  - DRUG HYPERSENSITIVITY [None]
